FAERS Safety Report 14393771 (Version 3)
Quarter: 2018Q2

REPORT INFORMATION
  Report Type: Spontaneous
  Country: US (occurrence: US)
  Receive Date: 20180116
  Receipt Date: 20180510
  Transmission Date: 20180711
  Serious: Yes (Hospitalization)
  Sender: FDA-Public Use
  Company Number: US-DSJP-DSU-2017-139960

PATIENT

DRUGS (1)
  1. BENICAR HCT [Suspect]
     Active Substance: HYDROCHLOROTHIAZIDE\OLMESARTAN MEDOXOMIL
     Indication: HYPERTENSION
     Dosage: 40/25MG, QD
     Route: 048
     Dates: start: 20070101

REACTIONS (7)
  - Mallory-Weiss syndrome [Unknown]
  - Haemorrhoids [Not Recovered/Not Resolved]
  - Diverticulum [Unknown]
  - Irritable bowel syndrome [Unknown]
  - Sprue-like enteropathy [Not Recovered/Not Resolved]
  - Impaired gastric emptying [Unknown]
  - Large intestine polyp [Unknown]

NARRATIVE: CASE EVENT DATE: 20140708
